FAERS Safety Report 12649170 (Version 1)
Quarter: 2016Q3

REPORT INFORMATION
  Report Type: Spontaneous
  Country: GB (occurrence: GB)
  Receive Date: 20160812
  Receipt Date: 20160812
  Transmission Date: 20161109
  Serious: Yes (Other)
  Sender: FDA-Public Use
  Company Number: GB-BIOMARINAP-GB-2016-110688

PATIENT
  Age: 5 Year
  Sex: Female
  Weight: 14.5 kg

DRUGS (1)
  1. NAGLAZYME [Suspect]
     Active Substance: GALSULFASE
     Indication: MUCOPOLYSACCHARIDOSIS VI
     Dosage: 15 MG, QW
     Route: 042

REACTIONS (2)
  - Cough [Not Recovered/Not Resolved]
  - Adenoidectomy [Not Recovered/Not Resolved]

NARRATIVE: CASE EVENT DATE: 20160801
